FAERS Safety Report 5272670-X (Version None)
Quarter: 2007Q1

REPORT INFORMATION
  Report Type: 
  Country: None (occurrence: None)
  Receive Date: 20061219
  Receipt Date: 20061013
  Transmission Date: 20070707
  Serious: Yes (Hospitalization)
  Sender: FDA-Public Use
  Company Number: US-JNJFOC-20060806205

PATIENT
  Age: 34 Year
  Sex: Female
  Weight: 90.7194 kg

DRUGS (9)
  1. ORTHO EVRA [Suspect]
     Indication: AMENORRHOEA
     Dosage: TRANSDERMAL
     Route: 062
     Dates: start: 20040701, end: 20040801
  2. EFFEXOR XR [Concomitant]
  3. GEODON [Concomitant]
  4. ATIVAN [Concomitant]
  5. TOPAMAX [Concomitant]
  6. NEURONTIN [Concomitant]
  7. DEPAKOTE [Concomitant]
  8. TYLENOL W/ CODEINE NO. 4 [Concomitant]
  9. MAXALT [Concomitant]

REACTIONS (1)
  - PULMONARY EMBOLISM [None]
